FAERS Safety Report 17429069 (Version 1)
Quarter: 2020Q1

REPORT INFORMATION
  Report Type: Spontaneous
  Country: HR (occurrence: HR)
  Receive Date: 20200217
  Receipt Date: 20200217
  Transmission Date: 20200409
  Serious: Yes (Hospitalization)
  Sender: FDA-Public Use
  Company Number: HR-US-PROVELL PHARMACEUTICALS LLC-E2B_90074819

PATIENT
  Age: 48 Year
  Sex: Female
  Weight: 111 kg

DRUGS (1)
  1. EUTHYROX [Suspect]
     Active Substance: LEVOTHYROXINE SODIUM
     Indication: AUTOIMMUNE THYROIDITIS
     Dosage: 75; 1X1
     Route: 048
     Dates: start: 201912

REACTIONS (8)
  - Chest discomfort [Recovering/Resolving]
  - Hypertension [Recovered/Resolved]
  - Fatigue [Recovering/Resolving]
  - Alopecia [Recovering/Resolving]
  - Tachycardia [Recovered/Resolved]
  - Blood potassium decreased [Recovering/Resolving]
  - Muscle spasms [Recovering/Resolving]
  - Asthenia [Recovering/Resolving]

NARRATIVE: CASE EVENT DATE: 201912
